FAERS Safety Report 9535898 (Version 1)
Quarter: 2013Q2

REPORT INFORMATION
  Report Type: Spontaneous
  Country: US (occurrence: None)
  Receive Date: 20130507
  Receipt Date: 20130507
  Transmission Date: 20140414
  Serious: Yes (Other)
  Sender: FDA-Public Use
  Company Number: PHEH2013US001930

PATIENT
  Age: 49 Year
  Sex: Male

DRUGS (3)
  1. TASIGNA (AMN107) CAPSULE [Suspect]
     Route: 048
  2. SPRYCEL (DASATINIB MONOHYDRATE) [Suspect]
  3. GLEEVEC (IMATINIB MESILATE) [Concomitant]

REACTIONS (5)
  - Chest pain [None]
  - Visual acuity reduced [None]
  - Eye pain [None]
  - Pain [None]
  - Headache [None]
